FAERS Safety Report 4994324-7 (Version None)
Quarter: 2006Q2

REPORT INFORMATION
  Report Type: 
  Country: None (occurrence: None)
  Receive Date: 20060503
  Receipt Date: 20060419
  Transmission Date: 20061013
  Serious: Yes (Hospitalization)
  Sender: FDA-Public Use
  Company Number: JP200604003452

PATIENT
  Age: 75 Year
  Sex: Female

DRUGS (3)
  1. EVISTA [Suspect]
     Indication: OSTEOPOROSIS
     Dosage: ORAL
     Route: 048
     Dates: start: 20050801
  2. PRAVASTATIN [Concomitant]
  3. ASPIRIN [Concomitant]

REACTIONS (7)
  - ABDOMINAL WALL ABSCESS [None]
  - ABDOMINAL WALL MASS [None]
  - ABDOMINAL WALL NEOPLASM [None]
  - FIBROSIS [None]
  - FOREIGN BODY TRAUMA [None]
  - INFLAMMATION [None]
  - SCAR PAIN [None]
